FAERS Safety Report 16968271 (Version 2)
Quarter: 2019Q4

REPORT INFORMATION
  Report Type: Spontaneous
  Country: US (occurrence: US)
  Receive Date: 20191028
  Receipt Date: 20191119
  Transmission Date: 20200122
  Serious: No
  Sender: FDA-Public Use
  Company Number: US-JNJFOC-20191035284

PATIENT
  Sex: Female
  Weight: 72.64 kg

DRUGS (1)
  1. TYLENOL 8 HR ARTHRITIS PAIN [Suspect]
     Active Substance: ACETAMINOPHEN
     Indication: SPONDYLITIS
     Dosage: 2 TABLETS ACCORDING TO THE LABEL
     Route: 048
     Dates: start: 20191001

REACTIONS (1)
  - Drug ineffective [Unknown]
